FAERS Safety Report 16752324 (Version 1)
Quarter: 2019Q3

REPORT INFORMATION
  Report Type: Report from Study
  Country: None (occurrence: ES)
  Receive Date: 20190828
  Receipt Date: 20190828
  Transmission Date: 20191005
  Serious: No
  Sender: FDA-Public Use
  Company Number: ES-ABBVIE-19P-144-2860917-00

PATIENT
  Age: 15 Year
  Sex: Female

DRUGS (6)
  1. AZATHIOPRINE. [Suspect]
     Active Substance: AZATHIOPRINE
     Route: 048
     Dates: start: 20171213, end: 20180715
  2. AZATHIOPRINE. [Suspect]
     Active Substance: AZATHIOPRINE
     Route: 048
     Dates: start: 20180716, end: 20190718
  3. HUMIRA [Suspect]
     Active Substance: ADALIMUMAB
     Indication: CROHN^S DISEASE
     Route: 058
     Dates: start: 20181029, end: 20190618
  4. MASTICAL D 400 UI [Concomitant]
     Indication: OSTEOPENIA
     Route: 048
     Dates: start: 20180701
  5. AZATHIOPRINE. [Suspect]
     Active Substance: AZATHIOPRINE
     Indication: CROHN^S DISEASE
     Route: 048
     Dates: start: 20130326, end: 20171212
  6. HUMIRA [Suspect]
     Active Substance: ADALIMUMAB
     Route: 058
     Dates: start: 20190814

REACTIONS (1)
  - Herpes pharyngitis [Not Recovered/Not Resolved]

NARRATIVE: CASE EVENT DATE: 20190711
